FAERS Safety Report 17811551 (Version 1)
Quarter: 2020Q2

REPORT INFORMATION
  Report Type: Spontaneous
  Country: US (occurrence: US)
  Receive Date: 20200520
  Receipt Date: 20200520
  Transmission Date: 20200714
  Serious: Yes (Life-Threatening)
  Sender: FDA-Public Use
  Company Number: None

PATIENT
  Age: 64 Year
  Sex: Female
  Weight: 65.77 kg

DRUGS (10)
  1. HYDROCHLOROLHIAZIDE [Concomitant]
     Dates: start: 20181014
  2. ATOWASTAIIN [Concomitant]
  3. IOSARTAN [Concomitant]
     Dates: start: 20181007
  4. VORTIOXETINE. [Suspect]
     Active Substance: VORTIOXETINE
     Indication: BIPOLAR DISORDER
     Dates: start: 20200516, end: 20200519
  5. CYMBALTA [Concomitant]
     Active Substance: DULOXETINE HYDROCHLORIDE
     Dates: start: 20151109
  6. GEOD ON [Concomitant]
     Dates: start: 20151108
  7. ESTRACE [Concomitant]
     Active Substance: ESTRADIOL
     Dates: start: 20190805
  8. MEDROXYPROGESTERONE [Concomitant]
     Active Substance: MEDROXYPROGESTERONE
  9. TOPAMAX [Concomitant]
     Active Substance: TOPIRAMATE
     Dates: start: 20170903
  10. LABETALOL [Concomitant]
     Active Substance: LABETALOL\LABETALOL HYDROCHLORIDE
     Dates: start: 20190707

REACTIONS (3)
  - Cerebellar infarction [None]
  - Headache [None]
  - Dizziness [None]

NARRATIVE: CASE EVENT DATE: 19560520
